FAERS Safety Report 13535324 (Version 2)
Quarter: 2017Q3

REPORT INFORMATION
  Report Type: Spontaneous
  Country: FR (occurrence: FR)
  Receive Date: 20170511
  Receipt Date: 20170915
  Transmission Date: 20171127
  Serious: Yes (Hospitalization)
  Sender: FDA-Public Use
  Company Number: FR-PFIZER INC-2017197913

PATIENT
  Age: 76 Year
  Sex: Female
  Weight: 83 kg

DRUGS (12)
  1. LYRICA [Suspect]
     Active Substance: PREGABALIN
     Indication: PAIN
     Dosage: 25 MG, 1X/DAY IN THE EVENING
     Route: 048
  2. NEOMERCAZOLE [Suspect]
     Active Substance: CARBIMAZOLE
     Indication: HYPERTHYROIDISM
     Dosage: 20 MG, DAILY
     Route: 048
     Dates: start: 201609
  3. FORLAX [Concomitant]
     Active Substance: POLYETHYLENE GLYCOL 4000
     Dosage: 2 DF, 1X/DAY IN THE MORNING
  4. ISOPTINE [Suspect]
     Active Substance: VERAPAMIL HYDROCHLORIDE
     Indication: ESSENTIAL HYPERTENSION
     Dosage: 40 MG, 2X/DAY 1 DF IN THE MORNING AND 1 IN THE EVENING
     Route: 048
     Dates: end: 20170415
  5. ATORVASTATIN MYLAN [Suspect]
     Active Substance: ATORVASTATIN
     Indication: HYPERLIPIDAEMIA
     Dosage: 10 MG, 1X/DAY IN THE EVENING
     Route: 048
  6. SKENAN [Suspect]
     Active Substance: MORPHINE SULFATE
     Indication: PAIN
     Dosage: 10 MG, 1X/DAY IN THE EVENING
     Route: 048
  7. ACTISKENAN [Concomitant]
     Active Substance: MORPHINE SULFATE
     Dosage: 1 CAPSULE EVERY 4 HOURS
  8. NEOMERCAZOLE [Suspect]
     Active Substance: CARBIMAZOLE
     Dosage: 40 MG, DAILY
     Route: 048
     Dates: end: 20170415
  9. KARDEGIC [Suspect]
     Active Substance: ASPIRIN LYSINE
     Indication: CARDIOVASCULAR EVENT PROPHYLAXIS
     Dosage: 160 MG, 1X/DAY AT NOON
     Route: 048
  10. COAPROVEL [Suspect]
     Active Substance: HYDROCHLOROTHIAZIDE\IRBESARTAN
     Indication: ESSENTIAL HYPERTENSION
     Dosage: 1 DF, 1X/DAY IN THE MORNING
     Route: 048
  11. IMOVANE [Suspect]
     Active Substance: ZOPICLONE
     Indication: INSOMNIA
     Dosage: 3.75 MG, 1X/DAY IN THE EVENING
     Route: 048
  12. SPASFON LYOC [Suspect]
     Active Substance: PHLOROGLUCINOL
     Indication: ABDOMINAL PAIN UPPER
     Dosage: 80 MG, 3X/DAY
     Route: 048

REACTIONS (5)
  - Back pain [Recovered/Resolved]
  - Hepatitis [Not Recovered/Not Resolved]
  - Abdominal pain upper [Recovered/Resolved]
  - Accidental overdose [Unknown]
  - Hepatitis cholestatic [Recovering/Resolving]

NARRATIVE: CASE EVENT DATE: 20170414
